FAERS Safety Report 4902862-8 (Version None)
Quarter: 2006Q1

REPORT INFORMATION
  Report Type: 
  Country: None (occurrence: None)
  Receive Date: 20060207
  Receipt Date: 20051220
  Transmission Date: 20060701
  Serious: Yes (Disabling)
  Sender: FDA-Public Use
  Company Number: JP-BOEHRINGER INGELHEIM PHARMACEUTICALS, INC.-2005-BP-21953NB

PATIENT
  Sex: Female
  Weight: 52.5 kg

DRUGS (8)
  1. MICARDIS [Suspect]
     Indication: HYPERTENSION
     Route: 048
     Dates: start: 20051112, end: 20051213
  2. MEVALOTIN [Concomitant]
     Indication: HYPERLIPIDAEMIA
     Route: 048
     Dates: start: 19970714
  3. ASPIRIN [Concomitant]
     Indication: CEREBRAL INFARCTION
     Route: 048
     Dates: start: 20030509
  4. NE-SOFT (TOCOPHEROL NICOTINATE) [Concomitant]
     Indication: HYPERLIPIDAEMIA
     Route: 048
     Dates: start: 19960805
  5. ALFASULY (ALFACALCIDOL) [Concomitant]
     Indication: OSTEOPOROSIS
     Route: 048
     Dates: start: 19960805
  6. MOBIC [Concomitant]
     Indication: OSTEOARTHRITIS
     Route: 048
     Dates: start: 20050216
  7. ZESTROMIN [Concomitant]
     Indication: INSOMNIA
     Route: 048
     Dates: start: 20000912
  8. SENNOSIDE [Concomitant]
     Indication: CONSTIPATION
     Route: 048
     Dates: start: 20050216

REACTIONS (1)
  - VISUAL FIELD DEFECT [None]
